FAERS Safety Report 4612216-X (Version None)
Quarter: 2005Q1

REPORT INFORMATION
  Report Type: 
  Country: None (occurrence: None)
  Receive Date: 20050308
  Receipt Date: 20041122
  Transmission Date: 20050727
  Serious: Yes (Other)
  Sender: FDA-Public Use
  Company Number: 2004UW23995

PATIENT
  Age: 71 Year
  Sex: Female
  Weight: 68.038 kg

DRUGS (2)
  1. CRESTOR [Suspect]
     Indication: BLOOD CHOLESTEROL INCREASED
     Dosage: 10 MG PO
     Route: 048
     Dates: end: 20041001
  2. PRILOSEC [Concomitant]

REACTIONS (2)
  - CONSTIPATION [None]
  - DYSURIA [None]
